FAERS Safety Report 16749690 (Version 10)
Quarter: 2021Q2

REPORT INFORMATION
  Report Type: Report from Study
  Country: JP (occurrence: JP)
  Receive Date: 20190828
  Receipt Date: 20210402
  Transmission Date: 20210716
  Serious: Yes (Death, Life-Threatening, Hospitalization, Other)
  Sender: FDA-Public Use
  Company Number: JP-ASTELLAS-2019JP017689

PATIENT
  Age: 6 Year
  Sex: Female
  Weight: 18 kg

DRUGS (23)
  1. ASP2215 [Suspect]
     Active Substance: GILTERITINIB
     Route: 048
     Dates: start: 20190913, end: 20190926
  2. ASP2215 [Suspect]
     Active Substance: GILTERITINIB
     Route: 048
     Dates: start: 20191005, end: 20191010
  3. ASP2215 [Suspect]
     Active Substance: GILTERITINIB
     Route: 048
     Dates: start: 20191011, end: 20191020
  4. DOXORUBICIN HYDROCHLORIDE. [Suspect]
     Active Substance: DOXORUBICIN HYDROCHLORIDE
     Indication: ACUTE MYELOID LEUKAEMIA
     Dosage: 45 MG/M2DAY, UNKNOWN FREQ.
     Route: 065
     Dates: start: 20191006, end: 20191007
  5. ASP2215 [Suspect]
     Active Substance: GILTERITINIB
     Indication: ACUTE MYELOID LEUKAEMIA RECURRENT
     Route: 048
     Dates: start: 20190817, end: 20190823
  6. ASP2215 [Suspect]
     Active Substance: GILTERITINIB
     Route: 048
     Dates: start: 20191122, end: 20200126
  7. FLUDARABINE PHOSPHATE. [Suspect]
     Active Substance: FLUDARABINE PHOSPHATE
     Indication: ACUTE MYELOID LEUKAEMIA
     Dosage: 30 MG/M2/DAY, UNKNOWN FREQ.
     Route: 065
     Dates: start: 20190817, end: 20190820
  8. CYTARABINE. [Suspect]
     Active Substance: CYTARABINE
     Dosage: 3G/M2/DAY, UNKNOWN FREQ.
     Route: 065
     Dates: start: 20191024, end: 20191025
  9. ASP2215 [Suspect]
     Active Substance: GILTERITINIB
     Route: 048
     Dates: start: 20200127, end: 20200316
  10. ASP2215 [Suspect]
     Active Substance: GILTERITINIB
     Route: 048
     Dates: start: 20190909, end: 20190912
  11. FLUDARABINE PHOSPHATE. [Suspect]
     Active Substance: FLUDARABINE PHOSPHATE
     Dosage: 30 MG/M2/DAY, UNKNOWN FREQ.
     Route: 065
     Dates: start: 20191006, end: 20191009
  12. CYTARABINE. [Suspect]
     Active Substance: CYTARABINE
     Dosage: 2G/M2/DAY, UNKNOWN FREQ.
     Route: 065
     Dates: start: 20191006, end: 20191007
  13. CYCLOPHOSPHAMIDE. [Concomitant]
     Active Substance: CYCLOPHOSPHAMIDE
     Indication: ACUTE MYELOID LEUKAEMIA
     Route: 065
     Dates: start: 20191026, end: 20191027
  14. CYTARABINE. [Suspect]
     Active Substance: CYTARABINE
     Indication: ACUTE MYELOID LEUKAEMIA
     Dosage: 30 MGDAY, UNKNOWN FREQ.
     Route: 050
     Dates: end: 20200525
  15. CYTARABINE. [Suspect]
     Active Substance: CYTARABINE
     Dosage: 40 MG/M2/DAY, UNKNOWN FREQ.
     Route: 065
     Dates: start: 20200317, end: 20200327
  16. METHOTREXATE. [Concomitant]
     Active Substance: METHOTREXATE
     Indication: ACUTE MYELOID LEUKAEMIA
     Dosage: 12 MG/DAY, UNKNOWN FREQ.
     Route: 050
     Dates: end: 20200525
  17. ASP2215 [Suspect]
     Active Substance: GILTERITINIB
     Dosage: 20 MG (GIVEN 40 MG BY DIVIDED DOSE), ONCE DAILY
     Route: 048
     Dates: start: 20190827, end: 20190828
  18. ASP2215 [Suspect]
     Active Substance: GILTERITINIB
     Route: 048
     Dates: start: 20190829, end: 20190906
  19. IDARUBICIN HYDROCHLORIDE. [Suspect]
     Active Substance: IDARUBICIN HYDROCHLORIDE
     Indication: ACUTE MYELOID LEUKAEMIA
     Dosage: 10 MG/M2/DAY, UNKNOWN FREQ.
     Route: 065
     Dates: start: 20190817, end: 20190819
  20. SAXIZON [Concomitant]
     Active Substance: HYDROCORTISONE SODIUM SUCCINATE
     Indication: ACUTE MYELOID LEUKAEMIA
     Dosage: 20 MG/DAY, UNKNOWN FREQ.
     Route: 050
     Dates: end: 20200525
  21. ASP2215 [Suspect]
     Active Substance: GILTERITINIB
     Route: 048
     Dates: start: 20200317, end: 20200327
  22. DOXORUBICIN HYDROCHLORIDE. [Suspect]
     Active Substance: DOXORUBICIN HYDROCHLORIDE
     Route: 065
     Dates: start: 20200328, end: 20200328
  23. CYTARABINE. [Suspect]
     Active Substance: CYTARABINE
     Dosage: 2G/M2/DAY, UNKNOWN FREQ.
     Route: 065
     Dates: start: 20190817, end: 20190820

REACTIONS (16)
  - Gastrointestinal haemorrhage [Recovering/Resolving]
  - Electrocardiogram QT prolonged [Not Recovered/Not Resolved]
  - Sepsis [Recovering/Resolving]
  - Melaena [Recovered/Resolved]
  - Pericardial effusion [Not Recovered/Not Resolved]
  - Wrong technique in product usage process [Unknown]
  - Pulmonary oedema [Fatal]
  - Pneumomediastinum [Recovering/Resolving]
  - Product administered to patient of inappropriate age [Unknown]
  - Hepatic function abnormal [Recovering/Resolving]
  - Myelosuppression [Recovered/Resolved]
  - Blood alkaline phosphatase increased [Not Recovered/Not Resolved]
  - Febrile neutropenia [Recovered/Resolved]
  - Pericarditis [Not Recovered/Not Resolved]
  - Off label use [Unknown]
  - Bronchopulmonary aspergillosis [Recovered/Resolved]

NARRATIVE: CASE EVENT DATE: 201908
